FAERS Safety Report 12432857 (Version 2)
Quarter: 2016Q2

REPORT INFORMATION
  Report Type: Spontaneous
  Country: IT (occurrence: IT)
  Receive Date: 20160603
  Receipt Date: 20160615
  Transmission Date: 20160815
  Serious: Yes (Hospitalization)
  Sender: FDA-Public Use
  Company Number: IT-TEVA-664121ACC

PATIENT
  Age: 70 Year
  Sex: Female

DRUGS (5)
  1. QUETIAPINA TEVA [Suspect]
     Active Substance: QUETIAPINE
     Dosage: 150 MILLIGRAM DAILY;
  2. QUETIAPINA TEVA [Suspect]
     Active Substance: QUETIAPINE
     Dosage: 300 MILLIGRAM DAILY;
  3. LASIX [Concomitant]
     Active Substance: FUROSEMIDE
  4. TALOFEN [Concomitant]
     Active Substance: PROMAZINE HYDROCHLORIDE
     Indication: PSYCHOTIC DISORDER
     Dosage: 10 GTT DAILY;
     Route: 048
  5. CARDIRENE [Concomitant]
     Active Substance: ASPIRIN DL-LYSINE
     Indication: WHEELCHAIR USER

REACTIONS (1)
  - Coma [Recovered/Resolved]

NARRATIVE: CASE EVENT DATE: 20160520
